FAERS Safety Report 20870918 (Version 1)
Quarter: 2022Q2

REPORT INFORMATION
  Report Type: Spontaneous
  Country: JP (occurrence: JP)
  Receive Date: 20220525
  Receipt Date: 20220525
  Transmission Date: 20220721
  Serious: Yes (Other)
  Sender: FDA-Public Use
  Company Number: JP-002147023-NVSJ2022JP090401

PATIENT
  Age: 76 Year
  Sex: Female

DRUGS (1)
  1. RANIBIZUMAB [Suspect]
     Active Substance: RANIBIZUMAB
     Indication: Choroidal neovascularisation
     Dosage: UNK
     Route: 065

REACTIONS (4)
  - Choroidal neovascularisation [Unknown]
  - Disease recurrence [Unknown]
  - Visual acuity reduced [Unknown]
  - Choroidal haemorrhage [Unknown]
